FAERS Safety Report 11408821 (Version 3)
Quarter: 2015Q4

REPORT INFORMATION
  Report Type: Spontaneous
  Country: US (occurrence: US)
  Receive Date: 20150823
  Receipt Date: 20151016
  Transmission Date: 20160304
  Serious: No
  Sender: FDA-Public Use
  Company Number: US-GLAXOSMITHKLINE-US2015120031

PATIENT
  Sex: Male

DRUGS (19)
  1. TIKOSYN [Concomitant]
     Active Substance: DOFETILIDE
  2. VITAMIN D3 [Concomitant]
     Active Substance: CHOLECALCIFEROL
  3. WARFARIN [Concomitant]
     Active Substance: WARFARIN
  4. MUPIROCIN TOPICAL [Concomitant]
  5. ADVAIR DISKUS [Suspect]
     Active Substance: FLUTICASONE PROPIONATE\SALMETEROL XINAFOATE
     Indication: CHRONIC OBSTRUCTIVE PULMONARY DISEASE
     Dosage: 1 PUFF(S), BID
     Route: 055
  6. ALBUTEROL SULFATE NEBULISER SOLUTION [Concomitant]
     Active Substance: ALBUTEROL SULFATE
  7. COENZYME Q10 [Concomitant]
     Active Substance: UBIDECARENONE
  8. ALPRAZOLAM. [Concomitant]
     Active Substance: ALPRAZOLAM
  9. ACYCLOVIR. [Concomitant]
     Active Substance: ACYCLOVIR
  10. HYDROCODONE [Concomitant]
     Active Substance: HYDROCODONE
  11. KETOCONAZOLE TOPICAL [Concomitant]
  12. LISINOPRIL. [Concomitant]
     Active Substance: LISINOPRIL
  13. OXYCODONE [Concomitant]
     Active Substance: OXYCODONE
  14. AMLODIPINE [Concomitant]
     Active Substance: AMLODIPINE BESYLATE
  15. OXYCODONE + APAP [Concomitant]
  16. ALBUTEROL. [Concomitant]
     Active Substance: ALBUTEROL
  17. ASPIRIN (BABY) [Concomitant]
     Active Substance: ASPIRIN
  18. METOPROLOL [Concomitant]
     Active Substance: METOPROLOL
  19. VITAMIN B12 [Concomitant]
     Active Substance: CYANOCOBALAMIN

REACTIONS (3)
  - Dyspnoea [Not Recovered/Not Resolved]
  - Intentional product use issue [Unknown]
  - Product quality issue [Unknown]
